FAERS Safety Report 6283568-2 (Version None)
Quarter: 2009Q3

REPORT INFORMATION
  Report Type: 
  Country: None (occurrence: None)
  Receive Date: 20090724
  Receipt Date: 20070605
  Transmission Date: 20100115
  Serious: Yes (Hospitalization)
  Sender: FDA-Public Use
  Company Number: US-ASTRAZENECA-2007UW03650

PATIENT
  Age: 379 Month
  Sex: Female
  Weight: 60.3 kg

DRUGS (25)
  1. SEROQUEL [Suspect]
     Indication: DEPRESSION
     Route: 048
     Dates: start: 20040101, end: 20060101
  2. SEROQUEL [Suspect]
     Indication: SLEEP DISORDER
     Route: 048
     Dates: start: 20040101, end: 20060101
  3. SEROQUEL [Suspect]
     Route: 048
     Dates: start: 20050909
  4. SEROQUEL [Suspect]
     Route: 048
     Dates: start: 20050909
  5. CYMBALTA [Concomitant]
     Route: 048
  6. CYMBALTA [Concomitant]
     Dosage: 30-60 MG
     Route: 048
  7. CLONAZEPAM [Concomitant]
     Route: 048
     Dates: start: 20030101
  8. CLONAZEPAM [Concomitant]
     Route: 048
  9. HYDROXYCHLOROQUINE SULFATE [Concomitant]
  10. NEXIUM [Concomitant]
     Route: 048
  11. PROPOXYPHENE HCL CAP [Concomitant]
  12. METOCLOPRAMIDE [Concomitant]
  13. ATIVAN [Concomitant]
     Dosage: 0.5-1 MG
     Route: 048
  14. EFFEXOR [Concomitant]
     Dosage: 75-150 MG
     Route: 048
  15. NEURONTIN [Concomitant]
     Route: 048
  16. TRILEPTAL [Concomitant]
     Dosage: 300-600 MG
     Route: 048
  17. PREDNISONE TAB [Concomitant]
     Dosage: 5-20 MG
     Route: 048
  18. GLYBURIDE [Concomitant]
     Dosage: 2.5-5 MG
     Route: 048
  19. DEMEROL [Concomitant]
     Route: 048
  20. VALIUM [Concomitant]
     Route: 048
  21. METOPROLOL SUCCINATE [Concomitant]
     Dosage: 12.5-25 MG
     Route: 048
  22. LYRICA [Concomitant]
     Route: 048
  23. DULOXETINE HYDROCHLORIDE [Concomitant]
     Dosage: 30-60 MG
     Route: 048
  24. ALPRAZOLAM [Concomitant]
     Dosage: 0.5-1 MG
     Route: 048
  25. AMBIEN [Concomitant]
     Route: 048

REACTIONS (5)
  - BLOOD GLUCOSE DECREASED [None]
  - CATHETERISATION CARDIAC [None]
  - CEREBROVASCULAR ACCIDENT [None]
  - CHEST PAIN [None]
  - DIABETES MELLITUS [None]
